FAERS Safety Report 14075850 (Version 1)
Quarter: 2017Q4

REPORT INFORMATION
  Report Type: Spontaneous
  Country: US (occurrence: US)
  Receive Date: 20171011
  Receipt Date: 20171011
  Transmission Date: 20180321
  Serious: Yes (Death, Life-Threatening, Hospitalization, Other)
  Sender: FDA-Public Use
  Company Number: US-SAOL THERAPEUTICS-2017SAO01555

PATIENT
  Age: 58 Year
  Sex: Male

DRUGS (1)
  1. LIORESAL [Suspect]
     Active Substance: BACLOFEN
     Dosage: 465 ?G, \DAY
     Route: 037

REACTIONS (10)
  - Pneumonia [Unknown]
  - Cardiac arrest [Fatal]
  - Muscle spasticity [Unknown]
  - Blood potassium increased [Unknown]
  - Unevaluable investigation [Unknown]
  - White blood cell count increased [Unknown]
  - Blood sodium decreased [Unknown]
  - Malaise [Unknown]
  - Myocardial infarction [Unknown]
  - Seizure [Unknown]

NARRATIVE: CASE EVENT DATE: 201710
